FAERS Safety Report 4449964-0 (Version None)
Quarter: 2004Q3

REPORT INFORMATION
  Report Type: 
  Country: None (occurrence: None)
  Receive Date: 20040915
  Receipt Date: 20040907
  Transmission Date: 20050211
  Serious: Yes (Other)
  Sender: FDA-Public Use
  Company Number: PHEH2004US09616

PATIENT
  Age: 77 Year
  Sex: Male

DRUGS (10)
  1. ZOMETA [Suspect]
     Indication: BONE DENSITY DECREASED
     Dosage: 4 MG, QMO
     Dates: start: 20020101
  2. DYAZIDE [Concomitant]
  3. SEREVENT [Concomitant]
     Indication: CHRONIC OBSTRUCTIVE AIRWAYS DISEASE
  4. ATROVENT [Concomitant]
     Indication: CHRONIC OBSTRUCTIVE AIRWAYS DISEASE
  5. LORTAB [Concomitant]
     Indication: PAIN
  6. VIOXX [Concomitant]
     Indication: PAIN
  7. CHEMOTHERAPEUTICS,OTHER [Concomitant]
  8. MELPHALAN [Concomitant]
  9. THALIDOMIDE [Concomitant]
  10. ARSENIC COMPOUNDS [Concomitant]

REACTIONS (2)
  - CELLULITIS [None]
  - OSTEOMYELITIS [None]
